FAERS Safety Report 5731918-5 (Version None)
Quarter: 2008Q2

REPORT INFORMATION
  Report Type: 
  Country: None (occurrence: None)
  Receive Date: 20080506
  Receipt Date: 20080506
  Transmission Date: 20081010
  Serious: Yes (Other)
  Sender: FDA-Public Use
  Company Number: None

PATIENT
  Sex: Female
  Weight: 72.5755 kg

DRUGS (1)
  1. CHANTIX [Suspect]
     Indication: SMOKING CESSATION THERAPY
     Dosage: ONE PILL, TWICE A DAY, PO
     Route: 048

REACTIONS (6)
  - ARTHRALGIA [None]
  - DEPRESSION [None]
  - DISTURBANCE IN ATTENTION [None]
  - IMPAIRED WORK ABILITY [None]
  - INSOMNIA [None]
  - NAUSEA [None]
